FAERS Safety Report 7569361-9 (Version None)
Quarter: 2011Q2

REPORT INFORMATION
  Report Type: 
  Country: None (occurrence: None)
  Receive Date: 20110623
  Receipt Date: 20110616
  Transmission Date: 20111010
  Serious: Yes (Other)
  Sender: FDA-Public Use
  Company Number: US-PFIZER INC-2011098844

PATIENT
  Sex: Male
  Weight: 78.005 kg

DRUGS (12)
  1. KALETRA [Concomitant]
     Indication: HIV INFECTION
     Dosage: 200-50 MG
     Route: 048
     Dates: start: 20030925
  2. ATRIPLA [Concomitant]
     Indication: HIV INFECTION
     Dosage: 600 - 200 - 300 MG 1X/DAY
     Route: 048
     Dates: start: 20061201
  3. MULTIVITAMIN ^LAPPE^ [Concomitant]
     Indication: MEDICAL DIET
     Dosage: UNK
     Route: 048
  4. PERCOCET [Concomitant]
     Indication: PAIN
     Dosage: 10- 325 MG
     Route: 048
     Dates: start: 20090225
  5. MOROCTOCOG ALFA [Suspect]
     Dosage: 2100 IU, ON DEMAND
     Route: 042
     Dates: start: 20090424, end: 20090426
  6. GLUCOSAMINE [Concomitant]
     Indication: ARTHRITIS
     Dosage: 500 - 400 MG
     Route: 048
     Dates: start: 20080517
  7. MOROCTOCOG ALFA [Suspect]
     Dosage: 2100 IU, ON DEMAND
     Route: 042
     Dates: start: 20090424, end: 20090426
  8. AMBIEN [Concomitant]
     Indication: SLEEP DISORDER
     Dosage: 10 MG, 1X/DAY
     Route: 048
     Dates: start: 20061107
  9. FISH OIL [Concomitant]
     Indication: MEDICAL DIET
     Dosage: 500 MG, 2X/DAY
     Route: 048
     Dates: start: 20060906
  10. FLAXSEED OIL [Concomitant]
     Indication: MEDICAL DIET
     Dosage: UNK
     Route: 048
     Dates: start: 20050420
  11. MOROCTOCOG ALFA [Suspect]
     Indication: FACTOR VIII DEFICIENCY
     Dosage: UNK
     Dates: end: 20090420
  12. OXYCONTIN [Concomitant]
     Indication: PAIN
     Dosage: 20 MG, AS NEEDED
     Route: 048
     Dates: start: 20050612

REACTIONS (1)
  - DRUG INEFFECTIVE [None]
